FAERS Safety Report 4389150-6 (Version None)
Quarter: 2004Q3

REPORT INFORMATION
  Report Type: 
  Country: None (occurrence: None)
  Receive Date: 20040702
  Receipt Date: 20040209
  Transmission Date: 20050211
  Serious: No
  Sender: FDA-Public Use
  Company Number: US-GLAXOSMITHKLINE-A0497200A

PATIENT
  Age: 56 Year
  Sex: Male

DRUGS (7)
  1. PARNATE [Suspect]
     Indication: DEPRESSION
     Route: 048
  2. ALTACE [Suspect]
     Dosage: 2.5MG PER DAY
  3. DIOVAN [Concomitant]
  4. UNKNOWN MEDICATION [Concomitant]
  5. LIPITOR [Concomitant]
  6. XANAX [Concomitant]
  7. EDECRIN [Concomitant]

REACTIONS (2)
  - NAUSEA [None]
  - VOMITING [None]
